FAERS Safety Report 21816615 (Version 2)
Quarter: 2023Q1

REPORT INFORMATION
  Report Type: Spontaneous
  Country: FR (occurrence: FR)
  Receive Date: 20230104
  Receipt Date: 20230127
  Transmission Date: 20230418
  Serious: Yes (Other)
  Sender: FDA-Public Use
  Company Number: FR-MLMSERVICE-20221221-3997124-1

PATIENT
  Age: 21 Year
  Sex: Female

DRUGS (2)
  1. OLANZAPINE [Suspect]
     Active Substance: OLANZAPINE
     Indication: Schizophrenia
     Dosage: 10 MILLIGRAM (UP TO 10 MG OVER 8 WEEK)
     Route: 065
  2. RISPERIDONE [Suspect]
     Active Substance: RISPERIDONE
     Indication: Schizophrenia
     Dosage: 3 MILLIGRAM (UP TO 3 MG OVER 6 WEEK)
     Route: 065

REACTIONS (6)
  - Dyskinesia [Recovering/Resolving]
  - Drug intolerance [Unknown]
  - Muscle rigidity [Recovering/Resolving]
  - Psychomotor skills impaired [Recovering/Resolving]
  - Tremor [Recovering/Resolving]
  - Drug ineffective [Unknown]
